FAERS Safety Report 26035814 (Version 2)
Quarter: 2025Q4

REPORT INFORMATION
  Report Type: Report from Study
  Country: US (occurrence: None)
  Receive Date: 20251112
  Receipt Date: 20251118
  Transmission Date: 20260117
  Serious: Yes (Other)
  Sender: UCB
  Company Number: US-UCBSA-2025070110

PATIENT
  Age: 30 Year
  Weight: 50 kg

DRUGS (11)
  1. FENFLURAMINE HYDROCHLORIDE [Suspect]
     Active Substance: FENFLURAMINE HYDROCHLORIDE
     Indication: Lennox-Gastaut syndrome
     Dosage: 8.8 MILLIGRAM PER DAY
  2. FENFLURAMINE HYDROCHLORIDE [Suspect]
     Active Substance: FENFLURAMINE HYDROCHLORIDE
     Dosage: 2 MILLILITER, 2X/DAY (BID)
  3. ONFI [Concomitant]
     Active Substance: CLOBAZAM
     Indication: Product used for unknown indication
     Dosage: 10 MILLIGRAM, ONCE DAILY (QD) NIGHTLY
  4. KEPPRA [Concomitant]
     Active Substance: LEVETIRACETAM
     Indication: Product used for unknown indication
     Dosage: UNK
  5. LAMICTAL [Concomitant]
     Active Substance: LAMOTRIGINE
     Indication: Product used for unknown indication
     Dosage: TAKE ONE TABLET BY MOUTH EVERY MORNING AND TAKE 1 AND 1/,2 TABLETS  IN THE EVENING (200MG AM AND 300MG PM)
  6. LAMICTAL [Concomitant]
     Active Substance: LAMOTRIGINE
     Dosage: TAKE ONE TABLET BY MOUTH EVERY MORNING AND TAKE 1 AND 1/,2 TABLETS  IN THE EVENING (200MG AM AND 300MG PM)
  7. NAYZILAM [Concomitant]
     Active Substance: MIDAZOLAM
     Dosage: ADMINISTER0.1 ML 2 EACH 3 MG/SPRAY (0.1 ML) SPRY INTO ONE NOSTRIL DAILY AS NEEDED
  8. CANNABIDIOL [Concomitant]
     Active Substance: CANNABIDIOL
     Indication: Product used for unknown indication
     Dosage: 5.2 MILLILITER, 2X/DAY (BID)
  9. KLONOPIN [Concomitant]
     Active Substance: CLONAZEPAM
     Indication: Seizure
     Dosage: 0.5 MILLIGRAM, 2X/DAY (BID)
  10. FELBATOL [Concomitant]
     Active Substance: FELBAMATE
     Indication: Product used for unknown indication
     Dosage: TAKE ONE TABLET EVERYDAY IN MORNING AND 1, 1/2 TABLET AT 3 PM AND 1+1/2 TABLET IN THE EVENING (400 MG AM, 600MG PM AND 600MG EVENING)
  11. EPIDIOLEX [Concomitant]
     Active Substance: CANNABIDIOL
     Indication: Product used for unknown indication
     Dosage: 4.8 MILLILITER, 2X/DAY (BID)

REACTIONS (2)
  - Aortic valve thickening [Not Recovered/Not Resolved]
  - Right ventricular hypertrophy [Not Recovered/Not Resolved]
